FAERS Safety Report 16264834 (Version 2)
Quarter: 2019Q2

REPORT INFORMATION
  Report Type: Report from Study
  Country: IT (occurrence: IT)
  Receive Date: 20190502
  Receipt Date: 20190604
  Transmission Date: 20190711
  Serious: Yes (Hospitalization)
  Sender: FDA-Public Use
  Company Number: IT-PFIZER INC-2019183039

PATIENT
  Age: 9 Year
  Sex: Male
  Weight: 37 kg

DRUGS (19)
  1. AUGMENTIN [Concomitant]
     Active Substance: AMOXICILLIN\CLAVULANATE POTASSIUM
     Dosage: 16 ML, UNK
     Dates: start: 20180913, end: 20180927
  2. DILATREND [Concomitant]
     Active Substance: CARVEDILOL
     Dosage: 1.56 MG, UNK
     Route: 048
  3. RANITIDINE. [Concomitant]
     Active Substance: RANITIDINE
     Dosage: 150 MG, UNK
     Route: 048
  4. URBASON [METHYLPREDNISOLONE] [Concomitant]
     Active Substance: METHYLPREDNISOLONE
     Dosage: 10 MG, UNK
     Route: 037
     Dates: start: 20180927, end: 20181015
  5. MYELOSTIM [Concomitant]
     Dosage: 1 DF, UNK
     Route: 058
     Dates: start: 20180917, end: 20180918
  6. ZOFRAN [Concomitant]
     Active Substance: ONDANSETRON HYDROCHLORIDE
     Indication: PROPHYLAXIS OF NAUSEA AND VOMITING
     Dosage: 8 MG, UNK
     Route: 042
     Dates: start: 20180927, end: 20180930
  7. ANTITHROMBIN III HUMAN [Concomitant]
     Active Substance: ANTITHROMBIN III HUMAN
     Dosage: UNK
     Dates: start: 20180913, end: 20180917
  8. MYCOSTATIN [Concomitant]
     Active Substance: NYSTATIN
     Dosage: 15 ML, UNK
     Route: 048
     Dates: start: 20180720
  9. PURINETHOL [Suspect]
     Active Substance: MERCAPTOPURINE
     Indication: ACUTE LYMPHOCYTIC LEUKAEMIA
     Dosage: 100 MG, ALTERNATE DAY
     Route: 042
     Dates: start: 20180910
  10. DEURSIL [Concomitant]
     Active Substance: URSODIOL
     Dosage: 900 MG, UNK
     Route: 048
  11. ARACYTIN [Suspect]
     Active Substance: CYTARABINE
     Indication: ACUTE LYMPHOCYTIC LEUKAEMIA
     Dosage: 90 MG, CYCLIC (ON THE FIRST DAY OF EACH CYCLE)
     Route: 042
     Dates: start: 20180910
  12. IG VENA [Concomitant]
     Active Substance: HUMAN IMMUNOGLOBULIN G
     Dosage: 10 G, UNK
     Dates: start: 20180917, end: 20180917
  13. ENDOXAN-BAXTER [Concomitant]
     Active Substance: CYCLOPHOSPHAMIDE
     Indication: ACUTE LYMPHOCYTIC LEUKAEMIA
     Dosage: 1180 MG, UNK
     Route: 042
     Dates: start: 20180906, end: 20181020
  14. PURINETHOL [Suspect]
     Active Substance: MERCAPTOPURINE
     Dosage: 50 MG, ALTERNATE DAY
     Route: 042
     Dates: start: 20180910
  15. UROMITEXAN [Concomitant]
     Active Substance: MESNA
     Indication: ACUTE LYMPHOCYTIC LEUKAEMIA
     Dosage: 590 MG, UNK
     Route: 042
     Dates: start: 20180906, end: 20181020
  16. ARACYTIN [Suspect]
     Active Substance: CYTARABINE
     Dosage: 88 MG, CYCLIC (FOR THE FOLLOWING DAYS OF EACH CYCLE)
     Route: 042
     Dates: end: 20181018
  17. METHOTREXATE SODIUM. [Suspect]
     Active Substance: METHOTREXATE SODIUM
     Indication: ACUTE LYMPHOCYTIC LEUKAEMIA
     Dosage: 12 MG, CYCLIC
     Route: 037
     Dates: start: 20180927, end: 20181015
  18. BACTRIM [Concomitant]
     Active Substance: SULFAMETHOXAZOLE\TRIMETHOPRIM
     Dosage: 14 ML, UNK
     Route: 048
  19. TRIMETON [Concomitant]
     Active Substance: CHLORPHENIRAMINE MALEATE
     Dosage: 1 DF, UNK
     Route: 042
     Dates: start: 20180917, end: 20180917

REACTIONS (2)
  - Vomiting [Recovering/Resolving]
  - Migraine [Recovering/Resolving]

NARRATIVE: CASE EVENT DATE: 20180930
